FAERS Safety Report 22595908 (Version 1)
Quarter: 2023Q2

REPORT INFORMATION
  Report Type: Report from Study
  Country: GB (occurrence: GB)
  Receive Date: 20230613
  Receipt Date: 20230613
  Transmission Date: 20230722
  Serious: Yes (Hospitalization)
  Sender: FDA-Public Use
  Company Number: GB-002147023-NVSC2022GB232359

PATIENT
  Age: 67 Year
  Sex: Female

DRUGS (4)
  1. DALFAMPRIDINE [Suspect]
     Active Substance: DALFAMPRIDINE
     Indication: Product used for unknown indication
     Dosage: UNK
     Route: 050
  2. GILENYA [Suspect]
     Active Substance: FINGOLIMOD HYDROCHLORIDE
     Indication: Multiple sclerosis
     Dosage: 0.5 MG, QD
     Route: 050
     Dates: start: 2014
  3. GILENYA [Suspect]
     Active Substance: FINGOLIMOD HYDROCHLORIDE
     Dosage: 0.5 MG, QD
     Route: 050
  4. PREGABALIN [Suspect]
     Active Substance: PREGABALIN
     Indication: Pain
     Dosage: 250 MG
     Route: 050

REACTIONS (6)
  - Intervertebral disc protrusion [Unknown]
  - Intervertebral disc degeneration [Unknown]
  - General physical health deterioration [Unknown]
  - Spinal osteoarthritis [Unknown]
  - Feeling abnormal [Unknown]
  - Back pain [Not Recovered/Not Resolved]
